FAERS Safety Report 18169761 (Version 1)
Quarter: 2020Q3

REPORT INFORMATION
  Report Type: Spontaneous
  Country: US (occurrence: US)
  Receive Date: 20200819
  Receipt Date: 20200819
  Transmission Date: 20201103
  Serious: Yes (Other)
  Sender: FDA-Public Use
  Company Number: None

PATIENT
  Age: 88 Year
  Sex: Female
  Weight: 65 kg

DRUGS (8)
  1. DILTIAZEM. [Concomitant]
     Active Substance: DILTIAZEM
  2. RIVAROXABAN [Concomitant]
     Active Substance: RIVAROXABAN
  3. RIVAROXABAN [Suspect]
     Active Substance: RIVAROXABAN
  4. METOPROLOL. [Concomitant]
     Active Substance: METOPROLOL
  5. RIVAROXABAN [Suspect]
     Active Substance: RIVAROXABAN
  6. AMIODARONE [Concomitant]
     Active Substance: AMIODARONE
  7. CO?ENZYME Q?10 [Concomitant]
  8. ANDEXXA [Suspect]
     Active Substance: ANDEXANET ALFA
     Indication: PROCOAGULANT THERAPY
     Dosage: ?          OTHER FREQUENCY:ONCE;?
     Route: 040

REACTIONS (2)
  - Peripheral artery thrombosis [None]
  - Peripheral ischaemia [None]

NARRATIVE: CASE EVENT DATE: 20200204
